FAERS Safety Report 6295104-5 (Version None)
Quarter: 2009Q3

REPORT INFORMATION
  Report Type: 
  Country: None (occurrence: None)
  Receive Date: 20090731
  Receipt Date: 20090731
  Transmission Date: 20100115
  Serious: Yes (Hospitalization)
  Sender: FDA-Public Use
  Company Number: None

PATIENT
  Age: 56 Year
  Sex: Male

DRUGS (1)
  1. OXCARBAZEPINE [Suspect]
     Indication: CONVULSION
     Dosage: 300 MG BID PO
     Route: 048
     Dates: start: 20090306, end: 20090415

REACTIONS (10)
  - CARDIAC ANEURYSM [None]
  - CONGESTIVE CARDIOMYOPATHY [None]
  - COUGH [None]
  - DYSPNOEA [None]
  - EJECTION FRACTION DECREASED [None]
  - FATIGUE [None]
  - FEELING ABNORMAL [None]
  - HYPONATRAEMIA [None]
  - INTRACARDIAC THROMBUS [None]
  - SLUGGISHNESS [None]
